FAERS Safety Report 26202396 (Version 1)
Quarter: 2025Q4

REPORT INFORMATION
  Report Type: Spontaneous
  Country: JP (occurrence: JP)
  Receive Date: 20251226
  Receipt Date: 20251226
  Transmission Date: 20260119
  Serious: Yes (Death, Hospitalization, Other)
  Sender: Onesource Specialty Pharma
  Company Number: JP-STRIDES ARCOLAB LIMITED-2025OS001539

PATIENT
  Age: 81 Year
  Sex: Male

DRUGS (13)
  1. AMPICILLIN [Suspect]
     Active Substance: AMPICILLIN
     Indication: Haematological infection
     Dosage: UNK
     Route: 065
  2. GANCICLOVIR SODIUM [Suspect]
     Active Substance: GANCICLOVIR SODIUM
     Indication: Cytomegalovirus infection reactivation
     Dosage: UNK
     Route: 065
  3. PIPERACILLIN SODIUM\TAZOBACTAM SODIUM [Suspect]
     Active Substance: PIPERACILLIN SODIUM\TAZOBACTAM SODIUM
     Indication: Bacteraemia
     Dosage: UNK
     Route: 065
  4. AZTREONAM [Suspect]
     Active Substance: AZTREONAM
     Indication: Bacteraemia
     Dosage: UNK
     Route: 065
  5. VANCOMYCIN [Suspect]
     Active Substance: VANCOMYCIN
     Indication: Haematological infection
     Dosage: UNK
     Route: 065
  6. AVACOPAN [Concomitant]
     Active Substance: AVACOPAN
     Indication: Microscopic polyangiitis
     Dosage: 60 MILLIGRAM, QD
     Route: 065
  7. RITUXIMAB [Concomitant]
     Active Substance: RITUXIMAB
     Indication: Microscopic polyangiitis
     Dosage: RECEIVED 4 CYCLES
     Route: 065
  8. COTRIMOXAZOLE [Concomitant]
     Active Substance: SULFAMETHOXAZOLE\TRIMETHOPRIM
     Indication: Prophylaxis
     Dosage: 200/40MG
     Route: 065
  9. VONOPRAZAN [Concomitant]
     Active Substance: VONOPRAZAN
     Indication: Prophylaxis
     Dosage: 20 MILLIGRAM, QD
     Route: 065
  10. URSODIOL [Concomitant]
     Active Substance: URSODIOL
     Indication: Vanishing bile duct syndrome
     Dosage: 600 MILLIGRAM, QD
     Route: 065
  11. METHYLPREDNISOLONE [Concomitant]
     Active Substance: METHYLPREDNISOLONE
     Indication: Vanishing bile duct syndrome
     Dosage: 1000 MILLIGRAM, QD
     Route: 065
  12. METHYLPREDNISOLONE [Concomitant]
     Active Substance: METHYLPREDNISOLONE
     Dosage: 60 MILLIGRAM, QD
     Route: 065
  13. PREDNISOLONE [Concomitant]
     Active Substance: PREDNISOLONE
     Indication: Microscopic polyangiitis
     Dosage: 20 MILLIGRAM, QD
     Route: 065

REACTIONS (3)
  - Septic shock [Fatal]
  - Drug ineffective for unapproved indication [Unknown]
  - Drug ineffective [Unknown]
